FAERS Safety Report 24673826 (Version 1)
Quarter: 2024Q4

REPORT INFORMATION
  Report Type: Spontaneous
  Country: CA (occurrence: CA)
  Receive Date: 20241128
  Receipt Date: 20241128
  Transmission Date: 20250114
  Serious: Yes (Other)
  Sender: CELLTRION
  Company Number: CA-PFIZER INC-202400103152

PATIENT

DRUGS (15)
  1. INFLECTRA [Suspect]
     Active Substance: INFLIXIMAB-DYYB
     Indication: Colitis ulcerative
     Dosage: 1 DF, (10MG/KG INDUCTION WEEKS 0,2,6 THEN 5MG/KG MAINTENANCE 8 WEEKS)
     Route: 042
     Dates: start: 20210727, end: 20211027
  2. INFLECTRA [Suspect]
     Active Substance: INFLIXIMAB-DYYB
     Dosage: 1000 MG, EVERY 4 WEEKS
     Route: 042
     Dates: start: 20211130, end: 20220928
  3. INFLECTRA [Suspect]
     Active Substance: INFLIXIMAB-DYYB
     Dosage: 900 MG, EVERY 4 WEEKS
     Route: 042
     Dates: start: 20221026
  4. INFLECTRA [Suspect]
     Active Substance: INFLIXIMAB-DYYB
     Dosage: 900 MG, EVERY 4 WEEKS
     Route: 042
     Dates: start: 20240409
  5. INFLECTRA [Suspect]
     Active Substance: INFLIXIMAB-DYYB
     Dosage: 900 MG, EVERY 4 WEEKS
     Route: 042
     Dates: start: 20240507
  6. INFLECTRA [Suspect]
     Active Substance: INFLIXIMAB-DYYB
     Dosage: 900 MG, EVERY 4 WEEKS
     Route: 042
     Dates: start: 20240604
  7. INFLECTRA [Suspect]
     Active Substance: INFLIXIMAB-DYYB
     Dosage: 900 MG, EVERY 4 WEEKS
     Route: 042
     Dates: start: 20240827
  8. INFLECTRA [Suspect]
     Active Substance: INFLIXIMAB-DYYB
     Dosage: 900 MG, EVERY 4 WEEKS
     Route: 042
     Dates: start: 20240924
  9. INFLECTRA [Suspect]
     Active Substance: INFLIXIMAB-DYYB
     Dosage: 900 MG, EVERY 4 WEEKS
     Route: 042
     Dates: start: 20241022
  10. INFLECTRA [Suspect]
     Active Substance: INFLIXIMAB-DYYB
     Dosage: 900 MG, EVERY 4 WEEKS
     Route: 042
     Dates: start: 20241119
  11. BISOPROLOL TEVA [Concomitant]
     Dosage: 1 DF
  12. LOSARTAN [Concomitant]
     Active Substance: LOSARTAN
     Dosage: 1 DF
  13. PREDNISONE [Concomitant]
     Active Substance: PREDNISONE
     Dosage: 1 DF
     Dates: start: 202106
  14. ROSUVASTATIN [Concomitant]
     Active Substance: ROSUVASTATIN
     Dosage: 1 DF
  15. GLYCOPYRROLATE [Concomitant]
     Active Substance: GLYCOPYRROLATE
     Dosage: 1 DF

REACTIONS (7)
  - Intraocular pressure test abnormal [Recovered/Resolved]
  - Gait disturbance [Recovering/Resolving]
  - Movement disorder [Recovering/Resolving]
  - Dermatitis acneiform [Recovering/Resolving]
  - Condition aggravated [Recovering/Resolving]
  - Arthralgia [Recovering/Resolving]
  - Headache [Recovered/Resolved]

NARRATIVE: CASE EVENT DATE: 20240101
